FAERS Safety Report 4537659-4 (Version None)
Quarter: 2004Q4

REPORT INFORMATION
  Report Type: 
  Country: None (occurrence: None)
  Receive Date: 20041221
  Receipt Date: 20040917
  Transmission Date: 20050328
  Serious: Yes (Hospitalization)
  Sender: FDA-Public Use
  Company Number: PERC20040047

PATIENT
  Age: 79 Year
  Sex: Male

DRUGS (1)
  1. PERCOCET [Suspect]
     Indication: PAIN
     Dates: start: 20040514, end: 20040517

REACTIONS (2)
  - NAUSEA [None]
  - VOMITING [None]
